FAERS Safety Report 7831326-7 (Version None)
Quarter: 2011Q4

REPORT INFORMATION
  Report Type: 
  Country: None (occurrence: None)
  Receive Date: 20111021
  Receipt Date: 20111017
  Transmission Date: 20120403
  Serious: Yes (Hospitalization, Other)
  Sender: FDA-Public Use
  Company Number: US-MERCK-1109USA01799

PATIENT
  Sex: Male
  Weight: 89 kg

DRUGS (1)
  1. ZOCOR [Suspect]
     Route: 048

REACTIONS (4)
  - RHABDOMYOLYSIS [None]
  - OVERDOSE [None]
  - DEMENTIA [None]
  - FALL [None]
